FAERS Safety Report 7088036-6 (Version None)
Quarter: 2010Q4

REPORT INFORMATION
  Report Type: 
  Country: None (occurrence: None)
  Receive Date: 20101108
  Receipt Date: 20101101
  Transmission Date: 20110411
  Serious: Yes (Death)
  Sender: FDA-Public Use
  Company Number: US-NOVOPROD-317269

PATIENT
  Sex: Male
  Weight: 94.331 kg

DRUGS (7)
  1. IDEG FLEXPEN [Suspect]
     Indication: TYPE 1 DIABETES MELLITUS
     Dosage: 42 IU, QD
     Route: 058
     Dates: start: 20090908, end: 20100901
  2. IDEG FLEXPEN [Suspect]
     Dosage: 38 IU, QD
     Route: 058
     Dates: start: 20100916
  3. NOVORAPID FLEXPEN [Suspect]
     Indication: TYPE 1 DIABETES MELLITUS
     Dosage: 50 IU, QD
     Route: 058
     Dates: start: 20090908, end: 20100915
  4. NOVORAPID FLEXPEN [Suspect]
     Dosage: 56 IU, QD
     Route: 058
     Dates: start: 20100916
  5. INSULATARD FLEXPEN HM(GE) [Suspect]
     Indication: TYPE 1 DIABETES MELLITUS
     Dosage: 36 IU, QD
     Route: 058
     Dates: start: 20100902, end: 20100915
  6. LISINOPRIL [Concomitant]
     Indication: HYPERTENSION
     Dosage: 20 MG, UNK
     Route: 048
     Dates: start: 20020101
  7. ASPIRIN [Concomitant]
     Indication: CARDIOVASCULAR EVENT PROPHYLAXIS
     Dosage: 81 MG, QD
     Route: 048
     Dates: start: 20000101

REACTIONS (1)
  - SUDDEN DEATH [None]
